FAERS Safety Report 6460441-8 (Version None)
Quarter: 2009Q4

REPORT INFORMATION
  Report Type: 
  Country: None (occurrence: None)
  Receive Date: 20091130
  Receipt Date: 20091120
  Transmission Date: 20100525
  Serious: Yes (Hospitalization, Other)
  Sender: FDA-Public Use
  Company Number: US-ROCHE-669770

PATIENT
  Sex: Male
  Weight: 83 kg

DRUGS (15)
  1. MYCOPHENOLATE MOFETIL [Suspect]
     Dosage: TEMP. INTERRUPT
     Route: 048
     Dates: start: 20081111, end: 20090414
  2. MYCOPHENOLATE MOFETIL [Suspect]
     Route: 048
     Dates: start: 20090415
  3. CP-690550 [Suspect]
     Route: 048
     Dates: start: 20081111
  4. PROTONIX [Concomitant]
     Dates: start: 20081111
  5. PROTONIX [Concomitant]
     Dates: start: 20081124
  6. CALCITRIOL [Concomitant]
     Dates: start: 20081119
  7. ALBUTEROL [Concomitant]
     Dates: start: 20081111
  8. OS-CAL D [Concomitant]
     Dates: start: 20081119
  9. NORVASC [Concomitant]
     Dates: start: 20081116
  10. OMEGA [Concomitant]
     Dosage: NAME ^OMEGA-3^
     Dates: start: 20091119
  11. VALCYTE [Concomitant]
     Dates: start: 20081111
  12. LABETALOL HCL [Concomitant]
     Dates: start: 20081111
  13. LISINOPRIL [Concomitant]
     Dates: start: 20090309, end: 20090101
  14. DRISDOL [Concomitant]
     Dates: start: 20090320
  15. ACETYLSALICYLIC ACID [Concomitant]
     Dates: start: 20081115

REACTIONS (4)
  - CYTOMEGALOVIRUS OESOPHAGITIS [None]
  - CYTOMEGALOVIRUS VIRAEMIA [None]
  - LEUKOPENIA [None]
  - TRANSPLANT REJECTION [None]
